FAERS Safety Report 9359707 (Version 3)
Quarter: 2013Q3

REPORT INFORMATION
  Report Type: Report from Study
  Country: US (occurrence: US)
  Receive Date: 20130621
  Receipt Date: 20130710
  Transmission Date: 20140515
  Serious: Yes (Death, Other)
  Sender: FDA-Public Use
  Company Number: US-ROCHE-1239689

PATIENT
  Sex: Female

DRUGS (3)
  1. AVASTIN [Suspect]
     Indication: FALLOPIAN TUBE CANCER
     Route: 065
     Dates: start: 20120525
  2. AVASTIN [Suspect]
     Dosage: 10 MG WERE WASTED
     Route: 042
     Dates: start: 20120802
  3. AVASTIN [Suspect]
     Dosage: 10 MG WERE WASTED
     Route: 042
     Dates: start: 20120816

REACTIONS (6)
  - Glioblastoma multiforme [Fatal]
  - Brain neoplasm malignant [Unknown]
  - Deafness [Unknown]
  - Fatigue [Unknown]
  - Bone disorder [Unknown]
  - Hypothyroidism [Unknown]
